FAERS Safety Report 8173818-X (Version None)
Quarter: 2012Q1

REPORT INFORMATION
  Report Type: 
  Country: None (occurrence: None)
  Receive Date: 20120229
  Receipt Date: 20120220
  Transmission Date: 20120608
  Serious: Yes (Hospitalization)
  Sender: FDA-Public Use
  Company Number: ES-ELI_LILLY_AND_COMPANY-ES201202005815

PATIENT
  Sex: Female
  Weight: 32 kg

DRUGS (1)
  1. FORTEO [Suspect]
     Indication: OSTEOPOROSIS
     Dosage: 20 UG, QD
     Route: 058
     Dates: start: 20120125, end: 20120219

REACTIONS (5)
  - BONE PAIN [None]
  - ASTHENIA [None]
  - DECREASED APPETITE [None]
  - PAIN [None]
  - ANAEMIA [None]
